FAERS Safety Report 6027932-5 (Version None)
Quarter: 2009Q1

REPORT INFORMATION
  Report Type: 
  Country: None (occurrence: None)
  Receive Date: 20090105
  Receipt Date: 20081230
  Transmission Date: 20090719
  Serious: Yes (Hospitalization)
  Sender: FDA-Public Use
  Company Number: PHHY2008GT33471

PATIENT
  Age: 77 Year
  Sex: Female

DRUGS (3)
  1. DIOVAN HCT [Suspect]
     Indication: HYPERTENSION
     Dosage: 160 MG VALSARTAN/12.5 MG HYDROCHLOROTHIAZIDE
     Route: 048
     Dates: start: 20060101
  2. BISOPROLOL FUMARATE [Concomitant]
     Dosage: 10 MG, PER DAY
     Route: 048
  3. CONTROLIP (ETOFYLLINE CLOFIBRATE) [Concomitant]
     Dosage: 250 MG, PER DAY
     Route: 048

REACTIONS (1)
  - TRANSIENT ISCHAEMIC ATTACK [None]
